FAERS Safety Report 15583203 (Version 2)
Quarter: 2019Q2

REPORT INFORMATION
  Report Type: Spontaneous
  Country: CA (occurrence: CA)
  Receive Date: 20181105
  Receipt Date: 20190614
  Transmission Date: 20190711
  Serious: Yes (Death)
  Sender: FDA-Public Use
  Company Number: CA-HLSUS-2018-CA-001562

PATIENT
  Age: 72 Year
  Sex: Male

DRUGS (4)
  1. CANNABIS [Concomitant]
     Active Substance: CANNABIS SATIVA SUBSP. INDICA TOP
  2. CLOZAPINE. [Suspect]
     Active Substance: CLOZAPINE
  3. DIAZEPAM. [Concomitant]
     Active Substance: DIAZEPAM
  4. TEMAZEPAM. [Concomitant]
     Active Substance: TEMAZEPAM

REACTIONS (4)
  - Arrhythmia [Fatal]
  - Asthenia [Unknown]
  - Arteriosclerosis coronary artery [Fatal]
  - Arteriosclerosis [Fatal]

NARRATIVE: CASE EVENT DATE: 2016
